FAERS Safety Report 24438373 (Version 2)
Quarter: 2025Q3

REPORT INFORMATION
  Report Type: Report from Study
  Country: US (occurrence: US)
  Receive Date: 20241015
  Receipt Date: 20250809
  Transmission Date: 20251020
  Serious: Yes (Other)
  Sender: ALEXION PHARMACEUTICALS
  Company Number: US-AstraZeneca-CH-00713491A

PATIENT
  Sex: Female

DRUGS (2)
  1. TEZSPIRE [Suspect]
     Active Substance: TEZEPELUMAB-EKKO
     Route: 065
  2. TEZSPIRE [Suspect]
     Active Substance: TEZEPELUMAB-EKKO

REACTIONS (22)
  - Dupuytren^s contracture [Unknown]
  - Muscular weakness [Unknown]
  - Decreased appetite [Unknown]
  - Food allergy [Unknown]
  - Weight decreased [Unknown]
  - Asthma [Unknown]
  - Bronchitis [Unknown]
  - Gastrooesophageal reflux disease [Unknown]
  - Seasonal allergy [Unknown]
  - Dysphonia [Unknown]
  - Hyperlipidaemia [Unknown]
  - Insomnia [Unknown]
  - Irritable bowel syndrome [Unknown]
  - Constipation [Unknown]
  - Laryngitis [Unknown]
  - Migraine [Unknown]
  - Laryngeal dyskinesia [Unknown]
  - Seasonal allergy [Unknown]
  - Thyroid mass [Unknown]
  - Lethargy [Unknown]
  - Vitamin B12 deficiency [Unknown]
  - Vitamin D deficiency [Unknown]
